FAERS Safety Report 16886905 (Version 1)
Quarter: 2019Q4

REPORT INFORMATION
  Report Type: Report from Study
  Country: ZA (occurrence: ZA)
  Receive Date: 20191004
  Receipt Date: 20191004
  Transmission Date: 20200122
  Serious: Yes (Hospitalization)
  Sender: FDA-Public Use
  Company Number: ZA-VIIV HEALTHCARE LIMITED-ZA2019GSK149741

PATIENT
  Age: 19 Year
  Sex: Female

DRUGS (4)
  1. EMTRICITABINE + TENOFOVIR [Concomitant]
     Active Substance: EMTRICITABINE\TENOFOVIR
     Indication: HIV INFECTION
     Dosage: 200/300 MG
     Dates: start: 20180503
  2. FERROUS SULFATE. [Concomitant]
     Active Substance: FERROUS SULFATE
     Dosage: 170 UNK, UNK
     Dates: start: 20170503, end: 20180714
  3. FOLIC ACID. [Concomitant]
     Active Substance: FOLIC ACID
     Dosage: 500 MG, UNK
     Dates: start: 20180503, end: 20180714
  4. DOLUTEGRAVIR [Suspect]
     Active Substance: DOLUTEGRAVIR
     Indication: HIV INFECTION
     Dosage: 50 MG, UNK
     Dates: start: 20180503

REACTIONS (1)
  - Breech presentation [Recovered/Resolved]

NARRATIVE: CASE EVENT DATE: 20180714
